FAERS Safety Report 7804394-6 (Version None)
Quarter: 2011Q4

REPORT INFORMATION
  Report Type: 
  Country: None (occurrence: None)
  Receive Date: 20111010
  Receipt Date: 20110927
  Transmission Date: 20120403
  Serious: Yes (Hospitalization, Other)
  Sender: FDA-Public Use
  Company Number: US-ELI_LILLY_AND_COMPANY-US201006006069

PATIENT
  Sex: Female
  Weight: 49.433 kg

DRUGS (20)
  1. FORTEO [Suspect]
     Dosage: 20 UG, QD
     Route: 065
  2. MYLANTA [Concomitant]
  3. VITAMIN D [Concomitant]
     Dosage: UNK, 2/D
  4. FORTEO [Suspect]
     Dosage: 20 UG, QD
  5. CALCIUM CARBONATE [Concomitant]
     Dosage: UNK, 2/D
  6. CARVEDILOL [Concomitant]
  7. FORTEO [Suspect]
     Dosage: 20 UG, DAILY (1/D)
     Route: 065
  8. FORTEO [Suspect]
     Dosage: 20 UG, QD
     Route: 065
  9. NITROGLYCERIN [Concomitant]
     Dosage: UNK, AS NEEDED
  10. ASPIRIN [Concomitant]
     Dosage: 325 MG, DAILY (1/D)
  11. FORTEO [Suspect]
     Indication: OSTEOPOROSIS
     Dosage: 20 UG, DAILY (1/D)
     Route: 065
  12. FORTEO [Suspect]
     Dosage: 20 UG, DAILY (1/D)
     Route: 065
  13. MULTI-VITAMIN [Concomitant]
     Dosage: UNK, DAILY (1/D)
  14. PLAVIX [Concomitant]
     Dosage: UNK, DAILY (1/D)
  15. PRAVACHOL [Concomitant]
  16. FERROUS SULFATE TAB [Concomitant]
  17. FORTEO [Suspect]
     Dosage: 20 UG, QD
     Route: 065
  18. SYNTHROID [Concomitant]
     Dosage: UNK, DAILY (1/D)
  19. LEXAPRO [Concomitant]
  20. SUCRALFATE [Concomitant]
     Dosage: UNK, DAILY (1/D)

REACTIONS (15)
  - MYOCARDIAL INFARCTION [None]
  - CYSTITIS [None]
  - CONSTIPATION [None]
  - DYSPEPSIA [None]
  - INJECTION SITE HAEMATOMA [None]
  - DIZZINESS [None]
  - CONTUSION [None]
  - FATIGUE [None]
  - CORONARY ARTERY DISEASE [None]
  - GASTROOESOPHAGEAL REFLUX DISEASE [None]
  - LIMB INJURY [None]
  - INJECTION SITE PAIN [None]
  - DIARRHOEA [None]
  - PAIN IN EXTREMITY [None]
  - MUSCLE SPASMS [None]
